FAERS Safety Report 10315020 (Version 1)
Quarter: 2014Q3

REPORT INFORMATION
  Report Type: Spontaneous
  Country: BR (occurrence: BR)
  Receive Date: 20140718
  Receipt Date: 20140718
  Transmission Date: 20150326
  Serious: Yes (Other)
  Sender: FDA-Public Use
  Company Number: PHHY2014BR088097

PATIENT
  Age: 16 Year

DRUGS (3)
  1. TEGRETOL CR [Suspect]
     Active Substance: CARBAMAZEPINE
     Dosage: 1450 MG/ DAY
  2. TEGRETOL CR [Suspect]
     Active Substance: CARBAMAZEPINE
     Dosage: 1200 MG, A DAY
  3. CLOBAZAM [Suspect]
     Active Substance: CLOBAZAM
     Dosage: UNK UKN, UNK

REACTIONS (6)
  - White blood cells urine positive [Unknown]
  - Haemoglobin decreased [Unknown]
  - Red blood cells urine positive [Unknown]
  - Platelet count decreased [Unknown]
  - Blood count abnormal [Unknown]
  - White blood cell count decreased [Unknown]

NARRATIVE: CASE EVENT DATE: 20101013
